FAERS Safety Report 18413808 (Version 1)
Quarter: 2020Q4

REPORT INFORMATION
  Report Type: Report from Study
  Country: None (occurrence: IL)
  Receive Date: 20201022
  Receipt Date: 20201022
  Transmission Date: 20210114
  Serious: Yes (Hospitalization)
  Sender: FDA-Public Use
  Company Number: IL-ABBVIE-20K-082-3615398-00

PATIENT
  Sex: Male

DRUGS (2)
  1. DUODOPA [Suspect]
     Active Substance: CARBIDOPA\LEVODOPA
     Indication: PARKINSON^S DISEASE
     Dosage: CURRENT: MORNING DOSE 9 ML, CONTINUOUS DOSE 3.1 ML/HOUR, EXTRA DOSE 1.3 ML
     Route: 058
     Dates: start: 20170725
  2. DUODOPA [Suspect]
     Active Substance: CARBIDOPA\LEVODOPA

REACTIONS (4)
  - Gait inability [Unknown]
  - Hypophagia [Unknown]
  - General physical health deterioration [Unknown]
  - Incorrect route of product administration [Unknown]
